FAERS Safety Report 4453709-8 (Version None)
Quarter: 2004Q3

REPORT INFORMATION
  Report Type: 
  Country: None (occurrence: None)
  Receive Date: 20040920
  Receipt Date: 20040909
  Transmission Date: 20050211
  Serious: Yes (Other)
  Sender: FDA-Public Use
  Company Number: FR-BRISTOL-MYERS SQUIBB COMPANY-12698338

PATIENT
  Age: 37 Year
  Sex: Female

DRUGS (2)
  1. ELISOR TABS [Suspect]
     Dosage: INITAL DOSE = 20MG/DAY FROM 1999-2001
     Route: 048
     Dates: start: 19990101, end: 20040819
  2. ETHINYL ESTRADIOL TAB [Concomitant]
     Route: 048
     Dates: start: 20040812, end: 20040813

REACTIONS (4)
  - FATIGUE [None]
  - METRORRHAGIA [None]
  - RENAL FAILURE [None]
  - RHABDOMYOLYSIS [None]
